FAERS Safety Report 19394224 (Version 2)
Quarter: 2021Q2

REPORT INFORMATION
  Report Type: Spontaneous
  Country: US (occurrence: US)
  Receive Date: 20210609
  Receipt Date: 20210618
  Transmission Date: 20210717
  Serious: No
  Sender: FDA-Public Use
  Company Number: US-GLAXOSMITHKLINE-US2021AMR121359

PATIENT
  Sex: Female

DRUGS (2)
  1. ZEJULA [Suspect]
     Active Substance: NIRAPARIB
     Indication: OVARIAN CANCER
     Dosage: 200 MG, QD
  2. ZEJULA [Suspect]
     Active Substance: NIRAPARIB
     Indication: FALLOPIAN TUBE CANCER
     Dosage: 300 MG, QD

REACTIONS (6)
  - Platelet count decreased [Unknown]
  - Heart rate increased [Recovering/Resolving]
  - Labile blood pressure [Recovering/Resolving]
  - Blood pressure increased [Unknown]
  - Insomnia [Recovering/Resolving]
  - Constipation [Not Recovered/Not Resolved]
